FAERS Safety Report 9430086 (Version 1)
Quarter: 2013Q3

REPORT INFORMATION
  Report Type: Spontaneous
  Country: US (occurrence: US)
  Receive Date: 20130730
  Receipt Date: 20130730
  Transmission Date: 20140515
  Serious: Yes (Hospitalization)
  Sender: FDA-Public Use
  Company Number: US-GILEAD-2013-0080212

PATIENT
  Sex: Male

DRUGS (6)
  1. STRIBILD [Suspect]
     Indication: HIV INFECTION
  2. CARVEDIOL [Interacting]
     Indication: PRODUCT USED FOR UNKNOWN INDICATION
  3. LISINOPRIL [Interacting]
     Indication: PRODUCT USED FOR UNKNOWN INDICATION
  4. FUROSEMIDE [Interacting]
     Indication: PRODUCT USED FOR UNKNOWN INDICATION
  5. MARAVIROC [Concomitant]
     Indication: HIV INFECTION
     Dosage: UNK
  6. MARAVIROC [Concomitant]
     Dosage: UNK

REACTIONS (2)
  - Renal impairment [Recovered/Resolved]
  - Drug interaction [Recovered/Resolved]
